FAERS Safety Report 18367353 (Version 1)
Quarter: 2020Q4

REPORT INFORMATION
  Report Type: Spontaneous
  Country: MX (occurrence: MX)
  Receive Date: 20201009
  Receipt Date: 20201009
  Transmission Date: 20210114
  Serious: Yes (Death, Other)
  Sender: FDA-Public Use
  Company Number: NVSC2020MX273090

PATIENT
  Age: 71 Year
  Sex: Female

DRUGS (3)
  1. CEFTRIAXONE. [Suspect]
     Active Substance: CEFTRIAXONE
     Indication: AMOEBIC BRAIN ABSCESS
     Dosage: 2 G EVERY 12 H
     Route: 042
  2. METRONIDAZOLE. [Suspect]
     Active Substance: METRONIDAZOLE
     Indication: AMOEBIC BRAIN ABSCESS
     Dosage: 750 MG EVERY 8 H
     Route: 042
  3. DEXAMETHASONE. [Suspect]
     Active Substance: DEXAMETHASONE
     Indication: AMOEBIC BRAIN ABSCESS
     Dosage: 8 MG EVERY 8 H
     Route: 042

REACTIONS (3)
  - Condition aggravated [Fatal]
  - Amoebic brain abscess [Unknown]
  - Product use in unapproved indication [Unknown]
